FAERS Safety Report 17365715 (Version 2)
Quarter: 2021Q1

REPORT INFORMATION
  Report Type: Report from Study
  Country: CA (occurrence: CA)
  Receive Date: 20200204
  Receipt Date: 20210127
  Transmission Date: 20210419
  Serious: Yes (Other)
  Sender: FDA-Public Use
  Company Number: CA-REGENERON PHARMACEUTICALS, INC.-2020-17022

PATIENT

DRUGS (8)
  1. EYLEA [Suspect]
     Active Substance: AFLIBERCEPT
     Indication: RETINAL VEIN OCCLUSION
     Dosage: UNK, EYE UNK
     Route: 031
     Dates: start: 20200121, end: 20200121
  2. EYLEA [Suspect]
     Active Substance: AFLIBERCEPT
     Dosage: UNK, EYE UNK
     Route: 031
     Dates: start: 20200520, end: 20200520
  3. EYLEA [Suspect]
     Active Substance: AFLIBERCEPT
     Dosage: UNK, EYE UNK
     Route: 031
     Dates: start: 20201202, end: 20201202
  4. EYLEA [Suspect]
     Active Substance: AFLIBERCEPT
     Dosage: UNK, EYE UNK
     Route: 031
     Dates: start: 20200624, end: 20200624
  5. EYLEA [Suspect]
     Active Substance: AFLIBERCEPT
     Dosage: UNK, EYE UNK
     Route: 031
     Dates: start: 20200818, end: 20200818
  6. EYLEA [Suspect]
     Active Substance: AFLIBERCEPT
     Dosage: UNK, EYE UNK
     Route: 031
     Dates: start: 20200317, end: 20200317
  7. EYLEA [Suspect]
     Active Substance: AFLIBERCEPT
     Indication: MACULAR OEDEMA
     Dosage: UNK
     Dates: start: 20200116
  8. EYLEA [Suspect]
     Active Substance: AFLIBERCEPT
     Dosage: UNK, EYE UNK
     Route: 031
     Dates: start: 20200218, end: 20200218

REACTIONS (2)
  - Surgery [Unknown]
  - Speech disorder [Unknown]
